FAERS Safety Report 25129666 (Version 2)
Quarter: 2025Q3

REPORT INFORMATION
  Report Type: Spontaneous
  Country: EU (occurrence: EU)
  Receive Date: 20250327
  Receipt Date: 20250922
  Transmission Date: 20251021
  Serious: Yes (Hospitalization)
  Sender: PFIZER
  Company Number: None

PATIENT
  Age: 16 Year
  Sex: Female
  Weight: 60.2 kg

DRUGS (15)
  1. MYLOTARG [Suspect]
     Active Substance: GEMTUZUMAB OZOGAMICIN
     Indication: Acute myeloid leukaemia
     Route: 042
     Dates: start: 20250203, end: 20250203
  2. PIPERACILLIN AND TAZOBACTAM [Suspect]
     Active Substance: PIPERACILLIN SODIUM\TAZOBACTAM SODIUM
     Indication: Febrile neutropenia
     Dosage: 12 G, 1X/DAY
     Route: 042
     Dates: start: 20250218, end: 20250228
  3. TRAMADOL HYDROCHLORIDE [Suspect]
     Active Substance: TRAMADOL HYDROCHLORIDE
     Indication: Pain
     Route: 048
     Dates: start: 20250218, end: 20250222
  4. MITOXANTRONE HYDROCHLORIDE [Concomitant]
     Active Substance: MITOXANTRONE HYDROCHLORIDE
     Dates: start: 20250131, end: 20250203
  5. VORICONAZOLE [Concomitant]
     Active Substance: VORICONAZOLE
  6. COTRIMOXAZOLE [Concomitant]
     Active Substance: SULFAMETHOXAZOLE\TRIMETHOPRIM
  7. NYSTATIN [Concomitant]
     Active Substance: NYSTATIN
  8. HYDROXYZINE HYDROCHLORIDE [Concomitant]
     Active Substance: HYDROXYZINE HYDROCHLORIDE
  9. ONDANSETRON [Concomitant]
     Active Substance: ONDANSETRON
  10. CHOLECALCIFEROL [Concomitant]
     Active Substance: CHOLECALCIFEROL
  11. MOVICOL [Concomitant]
     Active Substance: POLYETHYLENE GLYCOL 3350\POTASSIUM CHLORIDE\SODIUM BICARBONATE\SODIUM CHLORIDE
  12. PAROEX [Concomitant]
     Active Substance: CHLORHEXIDINE GLUCONATE
  13. ENANTONE LP [Concomitant]
     Active Substance: LEUPROLIDE ACETATE
  14. CYTARABINE [Concomitant]
     Active Substance: CYTARABINE
     Dates: end: 20250209
  15. POLARAMINE [Concomitant]
     Active Substance: DEXCHLORPHENIRAMINE MALEATE
     Indication: Premedication
     Dates: start: 20250203

REACTIONS (2)
  - Hepatic cytolysis [Recovering/Resolving]
  - Rash maculo-papular [Recovered/Resolved]

NARRATIVE: CASE EVENT DATE: 20250222
